FAERS Safety Report 18668072 (Version 2)
Quarter: 2021Q1

REPORT INFORMATION
  Report Type: Spontaneous
  Country: US (occurrence: US)
  Receive Date: 20201228
  Receipt Date: 20210325
  Transmission Date: 20210419
  Serious: No
  Sender: FDA-Public Use
  Company Number: US-SA-2020SA372607

PATIENT

DRUGS (2)
  1. CLARITIN EYE [Concomitant]
     Dosage: UNK
  2. ALLEGRA?D 24 HOUR [Suspect]
     Active Substance: FEXOFENADINE HYDROCHLORIDE\PSEUDOEPHEDRINE HYDROCHLORIDE
     Indication: HYPERSENSITIVITY
     Dosage: UNK
     Route: 065

REACTIONS (1)
  - Therapeutic response shortened [Unknown]
